FAERS Safety Report 8916618 (Version 1)
Quarter: 2012Q4

REPORT INFORMATION
  Report Type: Report from Study
  Country: CA (occurrence: CA)
  Receive Date: 20121120
  Receipt Date: 20121120
  Transmission Date: 20130627
  Serious: Yes (Hospitalization, Other)
  Sender: FDA-Public Use
  Company Number: CA-SANOFI-AVENTIS-2012SA082479

PATIENT
  Age: 78 Year
  Sex: Male
  Weight: 69 kg

DRUGS (12)
  1. OXALIPLATIN [Suspect]
     Indication: COLORECTAL CANCER
     Route: 041
     Dates: start: 20120924, end: 20121009
  2. 5-FU [Suspect]
     Indication: COLORECTAL CANCER
     Route: 065
     Dates: start: 20120924, end: 20121009
  3. FOLINIC ACID [Suspect]
     Indication: COLORECTAL CANCER
     Route: 065
     Dates: start: 20120924, end: 20121009
  4. INVESTIGATIONAL DRUG [Suspect]
     Indication: COLORECTAL CANCER
     Route: 065
     Dates: start: 20120924, end: 20121009
  5. METOPROLOL [Concomitant]
  6. DIOVAN HCT [Concomitant]
  7. METFORMIN [Concomitant]
  8. AVODART [Concomitant]
  9. GLYBURIDE [Concomitant]
  10. ASA [Concomitant]
  11. AMLODIPINE [Concomitant]
  12. LORAZEPAM [Concomitant]

REACTIONS (2)
  - Acute coronary syndrome [Not Recovered/Not Resolved]
  - Postoperative wound infection [Not Recovered/Not Resolved]
